FAERS Safety Report 19824331 (Version 1)
Quarter: 2021Q3

REPORT INFORMATION
  Report Type: Report from Study
  Country: US (occurrence: US)
  Receive Date: 20210913
  Receipt Date: 20210913
  Transmission Date: 20211014
  Serious: Yes (Hospitalization, Other)
  Sender: FDA-Public Use
  Company Number: US-SHIRE-US202004618

PATIENT
  Age: 60 Year
  Sex: Male

DRUGS (12)
  1. TEDUGLUTIDE [Suspect]
     Active Substance: TEDUGLUTIDE
     Indication: SHORT-BOWEL SYNDROME
     Dosage: 1.6 MILLIGRAM, 1X/DAY:QD
     Route: 058
     Dates: start: 20200108
  2. TEDUGLUTIDE [Suspect]
     Active Substance: TEDUGLUTIDE
     Dosage: 1.6 MILLIGRAM, QD
     Route: 058
     Dates: start: 20171221
  3. TEDUGLUTIDE [Suspect]
     Active Substance: TEDUGLUTIDE
     Indication: SHORT-BOWEL SYNDROME
     Dosage: 1.6 MILLIGRAM, 1X/DAY:QD
     Route: 058
     Dates: start: 20200108
  4. TEDUGLUTIDE [Suspect]
     Active Substance: TEDUGLUTIDE
     Indication: SHORT-BOWEL SYNDROME
     Dosage: 1.6 MILLIGRAM, 1X/DAY:QD
     Route: 058
     Dates: start: 20200108
  5. TEDUGLUTIDE [Suspect]
     Active Substance: TEDUGLUTIDE
     Dosage: 1.6 MILLIGRAM, 1X/DAY:QD
     Route: 058
     Dates: start: 20200511
  6. TEDUGLUTIDE [Suspect]
     Active Substance: TEDUGLUTIDE
     Dosage: 1.6 MILLIGRAM, 1X/DAY:QD
     Route: 058
     Dates: start: 20200511
  7. TEDUGLUTIDE [Suspect]
     Active Substance: TEDUGLUTIDE
     Dosage: 1.6 MILLIGRAM, QD
     Route: 058
     Dates: start: 20171221
  8. TEDUGLUTIDE [Suspect]
     Active Substance: TEDUGLUTIDE
     Dosage: 1.6 MILLIGRAM, QD
     Route: 058
     Dates: start: 20171221
  9. TEDUGLUTIDE [Suspect]
     Active Substance: TEDUGLUTIDE
     Dosage: 1.6 MILLIGRAM, QD
     Route: 058
     Dates: start: 20171221
  10. TEDUGLUTIDE [Suspect]
     Active Substance: TEDUGLUTIDE
     Indication: SHORT-BOWEL SYNDROME
     Dosage: 1.6 MILLIGRAM, 1X/DAY:QD
     Route: 058
     Dates: start: 20200108
  11. TEDUGLUTIDE [Suspect]
     Active Substance: TEDUGLUTIDE
     Dosage: 1.6 MILLIGRAM, 1X/DAY:QD
     Route: 058
     Dates: start: 20200511
  12. TEDUGLUTIDE [Suspect]
     Active Substance: TEDUGLUTIDE
     Dosage: 1.6 MILLIGRAM, 1X/DAY:QD
     Route: 058
     Dates: start: 20200511

REACTIONS (5)
  - Product dose omission issue [Unknown]
  - Memory impairment [Unknown]
  - Stress [Unknown]
  - Pneumonia [Unknown]
  - Intestinal obstruction [Recovered/Resolved]

NARRATIVE: CASE EVENT DATE: 202001
